FAERS Safety Report 4869594-6 (Version None)
Quarter: 2005Q4

REPORT INFORMATION
  Report Type: 
  Country: None (occurrence: None)
  Receive Date: 20051227
  Receipt Date: 20051222
  Transmission Date: 20060501
  Serious: Yes (Life-Threatening, Other)
  Sender: FDA-Public Use
  Company Number: HQWYE027215DEC05

PATIENT
  Age: 58 Year
  Sex: Male

DRUGS (5)
  1. TAZONAM                  (PIPERACILLIN/TAZOBACTAM, INJECTION) [Suspect]
     Indication: ACINETOBACTER INFECTION
     Dosage: 9 G 4 TIMES DAILY INTRAVENOUS
     Route: 042
     Dates: start: 20031118, end: 20031120
  2. TAZONAM                  (PIPERACILLIN/TAZOBACTAM, INJECTION) [Suspect]
     Indication: PNEUMONIA
     Dosage: 9 G 4 TIMES DAILY INTRAVENOUS
     Route: 042
     Dates: start: 20031118, end: 20031120
  3. BIKLIN            (AMIKACIN SULFATE) [Concomitant]
  4. DIPRIVAN [Concomitant]
  5. PANTOLOC                         (PANTOPRAZOLE) [Concomitant]

REACTIONS (1)
  - PATHOGEN RESISTANCE [None]
